APPROVED DRUG PRODUCT: TRIAMCINOLONE ACETONIDE
Active Ingredient: TRIAMCINOLONE ACETONIDE
Strength: 0.025%
Dosage Form/Route: CREAM;TOPICAL
Application: A089274 | Product #001
Applicant: TOPIDERM INC
Approved: Feb 21, 1989 | RLD: No | RS: No | Type: DISCN